FAERS Safety Report 13049336 (Version 3)
Quarter: 2017Q1

REPORT INFORMATION
  Report Type: Spontaneous
  Country: DE (occurrence: DE)
  Receive Date: 20161221
  Receipt Date: 20170104
  Transmission Date: 20170428
  Serious: Yes (Other)
  Sender: FDA-Public Use
  Company Number: DE-ABBVIE-16P-062-1811688-00

PATIENT
  Age: 54 Year
  Sex: Male

DRUGS (1)
  1. HUMIRA [Suspect]
     Active Substance: ADALIMUMAB
     Indication: CROHN^S DISEASE
     Route: 058

REACTIONS (4)
  - Medical device removal [Unknown]
  - Bone loss [Unknown]
  - Osteomyelitis [Unknown]
  - Purulence [Unknown]

NARRATIVE: CASE EVENT DATE: 201610
